FAERS Safety Report 4942117-9 (Version None)
Quarter: 2006Q1

REPORT INFORMATION
  Report Type: 
  Country: None (occurrence: None)
  Receive Date: 20060313
  Receipt Date: 20050628
  Transmission Date: 20060701
  Serious: No
  Sender: FDA-Public Use
  Company Number: US-GLAXOSMITHKLINE-A0564472A

PATIENT
  Age: 29 Year
  Sex: Male

DRUGS (1)
  1. NICORETTE (MINT) [Suspect]
     Dates: start: 20050623

REACTIONS (4)
  - DIZZINESS [None]
  - HUNGER [None]
  - INSOMNIA [None]
  - NAUSEA [None]
